FAERS Safety Report 14595930 (Version 1)
Quarter: 2018Q1

REPORT INFORMATION
  Report Type: Other
  Country: FR (occurrence: FR)
  Receive Date: 20180303
  Receipt Date: 20180303
  Transmission Date: 20180509
  Serious: Yes (Hospitalization, Other)
  Sender: FDA-Public Use
  Company Number: FR-ALSI-201800153

PATIENT
  Age: 76 Year
  Sex: Male

DRUGS (8)
  1. BCG-MEDAC [Suspect]
     Active Substance: BACILLUS CALMETTE-GUERIN ANTIGEN, UNSPECIFIED SUBSTRAIN
  2. PRAVASTATIN. [Concomitant]
     Active Substance: PRAVASTATIN
  3. PARACETAMOL [Concomitant]
     Active Substance: ACETAMINOPHEN
  4. SODIUM CHLORIDE. [Concomitant]
     Active Substance: SODIUM CHLORIDE
  5. VALSARTAN. [Concomitant]
     Active Substance: VALSARTAN
  6. CEFOTAXIME [Concomitant]
     Active Substance: CEFOTAXIME SODIUM
  7. OXYGEN. [Suspect]
     Active Substance: OXYGEN
     Indication: HYPOXIA
     Route: 055
  8. SPIRAMYCINE [Concomitant]
     Active Substance: SPIRAMYCIN

REACTIONS (4)
  - Granulomatous liver disease [None]
  - Granulomatous liver disease [Not Recovered/Not Resolved]
  - Disseminated Bacillus Calmette-Guerin infection [Not Recovered/Not Resolved]
  - Pulmonary tuberculosis [Not Recovered/Not Resolved]
